FAERS Safety Report 8088775-4 (Version None)
Quarter: 2012Q1

REPORT INFORMATION
  Report Type: 
  Country: None (occurrence: None)
  Receive Date: 20120128
  Receipt Date: 20110608
  Transmission Date: 20120608
  Serious: No
  Sender: FDA-Public Use
  Company Number: US-ABBOTT-11P-163-0731052-00

PATIENT
  Age: 59 Year
  Sex: Female

DRUGS (7)
  1. CRESTOR [Concomitant]
     Indication: BLOOD CHOLESTEROL INCREASED
  2. HUMIRA [Suspect]
     Indication: ANKYLOSING SPONDYLITIS
     Dates: start: 20110606
  3. VERAPAMIL [Concomitant]
     Indication: ARRHYTHMIA
  4. ASPIRIN [Concomitant]
     Indication: PRODUCT USED FOR UNKNOWN INDICATION
  5. KEPPRA [Concomitant]
     Indication: EPILEPSY
  6. KEPPRA [Concomitant]
     Indication: CONVULSION
     Dosage: IN THE AM
  7. VALIUM [Concomitant]
     Indication: ANXIETY

REACTIONS (6)
  - ABDOMINAL DISTENSION [None]
  - DIZZINESS [None]
  - ABDOMINAL PAIN UPPER [None]
  - HEADACHE [None]
  - FLUSHING [None]
  - FLATULENCE [None]
